FAERS Safety Report 20297071 (Version 1)
Quarter: 2022Q1

REPORT INFORMATION
  Report Type: Spontaneous
  Country: NL (occurrence: NL)
  Receive Date: 20220105
  Receipt Date: 20220105
  Transmission Date: 20220423
  Serious: Yes (Other)
  Sender: FDA-Public Use
  Company Number: None

PATIENT
  Age: 53 Year
  Sex: Female
  Weight: 85 kg

DRUGS (2)
  1. CINACALCET [Suspect]
     Active Substance: CINACALCET
     Indication: Blood calcium increased
     Dosage: 30 MILLIGRAM DAILY; CINACALCET TABLET 30MG / BRAND NAME NOT SPECIFIED
     Route: 065
     Dates: start: 20211203, end: 20211210
  2. LITHIUM CARBONATE [Concomitant]
     Active Substance: LITHIUM CARBONATE
     Dosage: 800MG, LITHIUM CARBONATE TABLET MGA 400MG / CAMCOLIT TABLET 400MG, THERAPY START AND END DATE: ASKU

REACTIONS (6)
  - Syncope [Recovering/Resolving]
  - Asthenia [Recovering/Resolving]
  - Sensation of foreign body [Recovering/Resolving]
  - Visual impairment [Recovering/Resolving]
  - Paraesthesia [Recovering/Resolving]
  - Feeling abnormal [Recovering/Resolving]

NARRATIVE: CASE EVENT DATE: 20211209
